FAERS Safety Report 8491335-4 (Version None)
Quarter: 2012Q3

REPORT INFORMATION
  Report Type: 
  Country: None (occurrence: None)
  Receive Date: 20120706
  Receipt Date: 20120702
  Transmission Date: 20120928
  Serious: Yes (Hospitalization)
  Sender: FDA-Public Use
  Company Number: PHHY2012JP049148

PATIENT

DRUGS (1)
  1. CARBAMAZEPINE [Suspect]
     Indication: TRIGEMINAL NEURALGIA
     Route: 048

REACTIONS (5)
  - TUBULOINTERSTITIAL NEPHRITIS [None]
  - ERYTHEMA MULTIFORME [None]
  - NAUSEA [None]
  - PYREXIA [None]
  - DECREASED APPETITE [None]
